FAERS Safety Report 23351867 (Version 1)
Quarter: 2023Q4

REPORT INFORMATION
  Report Type: Report from Study
  Country: MX (occurrence: None)
  Receive Date: 20231229
  Receipt Date: 20231229
  Transmission Date: 20240110
  Serious: Yes (Other)
  Sender: FDA-Public Use
  Company Number: 2023A293328

PATIENT
  Age: 23132 Day
  Sex: Female
  Weight: 57 kg

DRUGS (2)
  1. DAPAGLIFLOZIN [Suspect]
     Active Substance: DAPAGLIFLOZIN
     Indication: Diabetes mellitus
     Route: 048
     Dates: start: 20231009
  2. DAPAGLIFLOZIN [Suspect]
     Active Substance: DAPAGLIFLOZIN
     Indication: Chronic kidney disease
     Route: 048
     Dates: start: 20231009

REACTIONS (10)
  - Liver disorder [Unknown]
  - Weight increased [Unknown]
  - Cough [Unknown]
  - Hypoaesthesia [Unknown]
  - Limb discomfort [Unknown]
  - Burning sensation [Recovering/Resolving]
  - Blood uric acid abnormal [Unknown]
  - Peripheral swelling [Unknown]
  - Inflammation [Unknown]
  - Drug ineffective [Unknown]

NARRATIVE: CASE EVENT DATE: 20231001
